FAERS Safety Report 6296217-4 (Version None)
Quarter: 2009Q3

REPORT INFORMATION
  Report Type: 
  Country: None (occurrence: None)
  Receive Date: 20090804
  Receipt Date: 20090724
  Transmission Date: 20100115
  Serious: Yes (Death, Hospitalization, Other)
  Sender: FDA-Public Use
  Company Number: US-NOVOPROD-286206

PATIENT
  Sex: Female
  Weight: 61 kg

DRUGS (8)
  1. NORDITROPIN NORDIFLEX [Suspect]
     Indication: GROWTH HORMONE DEFICIENCY
     Dosage: 1 MG, QD
     Route: 058
     Dates: start: 20061201, end: 20070901
  2. NORDITROPIN NORDIFLEX [Suspect]
     Dosage: 1 MG, QD
     Route: 058
     Dates: start: 20080501
  3. SYNTHROID [Concomitant]
     Indication: HYPOTHYROIDISM
  4. DDAVP [Concomitant]
     Indication: DIABETES INSIPIDUS
  5. PREDNISONE TAB [Concomitant]
     Indication: DIABETES INSIPIDUS
  6. FLORINEF [Concomitant]
     Indication: DIABETES INSIPIDUS
  7. TAGAMET                            /00397401/ [Concomitant]
     Indication: NAUSEA
  8. SEROQUEL [Concomitant]
     Indication: INSOMNIA

REACTIONS (6)
  - ABDOMINAL PAIN [None]
  - PANCREATITIS [None]
  - RESPIRATORY FAILURE [None]
  - SEPTIC SHOCK [None]
  - VENTRICULOPERITONEAL SHUNT MALFUNCTION [None]
  - VOMITING [None]
